FAERS Safety Report 6765403-9 (Version None)
Quarter: 2010Q2

REPORT INFORMATION
  Report Type: 
  Country: None (occurrence: None)
  Receive Date: 20100609
  Receipt Date: 20100525
  Transmission Date: 20101027
  Serious: Yes (Other)
  Sender: FDA-Public Use
  Company Number: 012708

PATIENT
  Age: 31 Year
  Sex: Female

DRUGS (2)
  1. KEPPRA [Suspect]
     Dosage: 500 MG BID, (500MG IN THE MORNING+1000MG IN THE NIGHT), (1000 MG QD)
  2. LAMICTAL [Suspect]
     Indication: CONVULSION
     Dosage: ORAL
     Route: 048
     Dates: start: 20100401, end: 20100504

REACTIONS (4)
  - CONVULSION [None]
  - DRUG PRESCRIBING ERROR [None]
  - OVERDOSE [None]
  - POTENTIATING DRUG INTERACTION [None]
